FAERS Safety Report 4513055-0 (Version None)
Quarter: 2004Q4

REPORT INFORMATION
  Report Type: 
  Country: None (occurrence: None)
  Receive Date: 20041130
  Receipt Date: 20041118
  Transmission Date: 20050328
  Serious: Yes (Hospitalization)
  Sender: FDA-Public Use
  Company Number: FR-AMGEN-UK096355

PATIENT
  Sex: Male
  Weight: 75 kg

DRUGS (5)
  1. NEULASTA [Suspect]
     Indication: CHEMOTHERAPY
     Route: 058
     Dates: start: 20040925
  2. ADRIBLASTINE [Concomitant]
     Dates: start: 20040920, end: 20040920
  3. CYCLOPHOSPHAMIDE [Concomitant]
     Dates: start: 20040920
  4. BLEOMYCIN [Concomitant]
  5. ELDISINE [Concomitant]
     Dates: start: 20040920

REACTIONS (2)
  - BACK PAIN [None]
  - CHEST PAIN [None]
